FAERS Safety Report 17323428 (Version 5)
Quarter: 2020Q2

REPORT INFORMATION
  Report Type: Other
  Country: US (occurrence: US)
  Receive Date: 20200127
  Receipt Date: 20200609
  Transmission Date: 20200713
  Serious: Yes (Death, Hospitalization, Other)
  Sender: FDA-Public Use
  Company Number: US-ACORDA-ACO_163362_2020

PATIENT
  Age: 68 Year
  Sex: Male

DRUGS (33)
  1. FISH OIL [Concomitant]
     Active Substance: FISH OIL
     Indication: PRODUCT USED FOR UNKNOWN INDICATION
     Dosage: 1000 MILLIGRAM, QD
     Route: 048
  2. NEURONTIN [Concomitant]
     Active Substance: GABAPENTIN
     Indication: NEURALGIA
     Dosage: 600 MILLIGRAM, TID
     Route: 048
     Dates: start: 20190618
  3. STOOL SOFTENER (DOCUSATE) [Concomitant]
     Active Substance: DOCUSATE
     Indication: PRODUCT USED FOR UNKNOWN INDICATION
     Dosage: UNK
     Route: 065
  4. OXYCODONE [Concomitant]
     Active Substance: OXYCODONE
     Indication: PAIN
     Dosage: 15 MILLIGRAM, Q 6 HRS
     Route: 048
     Dates: start: 20191120
  5. PNEUMOVAX 23 [Concomitant]
     Active Substance: PNEUMOCOCCAL VACCINE, POLYVALENT 23
     Dosage: UNK
     Route: 065
     Dates: start: 20180206
  6. TAMSULOSIN [Concomitant]
     Active Substance: TAMSULOSIN
     Indication: PRODUCT USED FOR UNKNOWN INDICATION
     Dosage: 0.4 MILLIGRAM, QD
     Route: 048
     Dates: start: 20190603
  7. LACTULOSE. [Concomitant]
     Active Substance: LACTULOSE
     Indication: PRODUCT USED FOR UNKNOWN INDICATION
     Dosage: 20 GRAM, TID
     Route: 048
     Dates: start: 20191213
  8. CARDIZEM [Concomitant]
     Active Substance: DILTIAZEM HYDROCHLORIDE
     Indication: HYPERTENSION
     Dosage: 30 MILLIGRAM, TID
  9. AMPYRA [Suspect]
     Active Substance: DALFAMPRIDINE
     Indication: MULTIPLE SCLEROSIS
     Dosage: 10 MILLIGRAM, BID
     Route: 048
     Dates: start: 20170214, end: 20200327
  10. LIORESAL [Concomitant]
     Active Substance: BACLOFEN
     Dosage: 30 MILLIGRAM, TID
     Route: 065
  11. CYMBALTA [Concomitant]
     Active Substance: DULOXETINE HYDROCHLORIDE
     Indication: PRODUCT USED FOR UNKNOWN INDICATION
     Dosage: 20 MILLIGRAM, BID
     Route: 048
  12. CATAPRES [Concomitant]
     Active Substance: CLONIDINE HYDROCHLORIDE
     Indication: PRODUCT USED FOR UNKNOWN INDICATION
     Dosage: 0.1 MILLIGRAM, Q 6 HRS
     Route: 048
     Dates: start: 20190617
  13. FLUTICASONE. [Concomitant]
     Active Substance: FLUTICASONE
     Indication: PRODUCT USED FOR UNKNOWN INDICATION
     Dosage: 2 DOSAGE FORM, QD
     Route: 045
     Dates: start: 20190307
  14. PHILLIPS COLON HEALTH [Concomitant]
     Indication: PRODUCT USED FOR UNKNOWN INDICATION
     Dosage: 2 DOSAGE FORM, BID
     Route: 048
     Dates: start: 20180813
  15. AMPYRA [Suspect]
     Active Substance: DALFAMPRIDINE
     Indication: GAIT DISTURBANCE
  16. AUBAGIO [Concomitant]
     Active Substance: TERIFLUNOMIDE
     Indication: PRODUCT USED FOR UNKNOWN INDICATION
     Dosage: 14 MILLIGRAM, QD
     Route: 048
     Dates: start: 20191101
  17. VITAMIN B12 [Concomitant]
     Active Substance: CYANOCOBALAMIN
     Indication: PRODUCT USED FOR UNKNOWN INDICATION
     Dosage: 1000 MICROGRAM, MONTHLY
     Route: 058
  18. PEPCID [Concomitant]
     Active Substance: FAMOTIDINE
     Indication: PRODUCT USED FOR UNKNOWN INDICATION
     Dosage: 40 MILLIGRAM, QD
     Route: 048
  19. PNEUMOVAX 23 [Concomitant]
     Active Substance: PNEUMOCOCCAL VACCINE, POLYVALENT 23
     Indication: PRODUCT USED FOR UNKNOWN INDICATION
     Dosage: 0.5 MILLILITER, QD
     Route: 065
     Dates: start: 20180126
  20. LIORESAL [Concomitant]
     Active Substance: BACLOFEN
     Indication: NEURALGIA
     Dosage: 20 MILLIGRAM, TID
     Route: 048
     Dates: start: 20190903
  21. VITAMIN D2 [Concomitant]
     Active Substance: ERGOCALCIFEROL
     Indication: PRODUCT USED FOR UNKNOWN INDICATION
     Dosage: 1 DOSAGE FORM, WEEKLY
     Route: 048
     Dates: start: 20190819
  22. SENNA [Concomitant]
     Active Substance: SENNA LEAF\SENNOSIDES\SENNOSIDES A AND B
     Indication: CONSTIPATION
     Dosage: 2 DOSAGE FORM, PRN
     Route: 048
     Dates: start: 20190205
  23. LIDODERM [Concomitant]
     Active Substance: LIDOCAINE
     Indication: PRODUCT USED FOR UNKNOWN INDICATION
     Dosage: 2 DOSAGE FORM, QD
     Route: 062
     Dates: start: 20191213
  24. FLUZONE [Concomitant]
     Active Substance: INFLUENZA A VIRUS A/CALIFORNIA/7/2009 X-179A (H1N1) ANTIGEN (FORMALDEHYDE INACTIVATED)\INFLUENZA A VIRUS A/VICTORIA/210/2009 X-187 (H3N2) ANTIGEN (FORMALDEHYDE INACTIVATED)\INFLUENZA B VIRUS B/BRISBANE/60/2008 ANTIGEN (FORMALDEHYDE INACTIVATED)
     Indication: PRODUCT USED FOR UNKNOWN INDICATION
     Dosage: UNK
     Route: 065
     Dates: start: 20181002
  25. IRON [Concomitant]
     Active Substance: IRON
     Indication: PRODUCT USED FOR UNKNOWN INDICATION
     Dosage: 45 MILLIGRAM, QOD
     Route: 048
     Dates: start: 20191213
  26. LASIX [Concomitant]
     Active Substance: FUROSEMIDE
     Indication: PRODUCT USED FOR UNKNOWN INDICATION
     Dosage: 20 MILLIGRAM, QD
     Route: 048
     Dates: start: 20190913
  27. NORVASC [Concomitant]
     Active Substance: AMLODIPINE BESYLATE
     Indication: PRODUCT USED FOR UNKNOWN INDICATION
     Dosage: 2.5 MILLIGRAM, QD
     Route: 048
     Dates: start: 20190617
  28. PERCOCET [Concomitant]
     Active Substance: ACETAMINOPHEN\OXYCODONE HYDROCHLORIDE
     Indication: PAIN
     Dosage: 10/325 MG, 1 DOSAGE FORM, EVERY 4 HOURS
     Route: 065
  29. AMLODIPINE [Concomitant]
     Active Substance: AMLODIPINE BESYLATE
     Indication: PRODUCT USED FOR UNKNOWN INDICATION
     Dosage: 2.5 MILLIGRAM, QD
     Route: 048
     Dates: start: 20191224
  30. LOSARTAN. [Concomitant]
     Active Substance: LOSARTAN
     Indication: PRODUCT USED FOR UNKNOWN INDICATION
     Dosage: 100 MILLIGRAM, QD
     Route: 048
     Dates: start: 20190617
  31. DALFAMPRIDINE. [Suspect]
     Active Substance: DALFAMPRIDINE
     Indication: PRODUCT USED FOR UNKNOWN INDICATION
     Dosage: 10 MILLIGRAM, BID
     Route: 048
  32. AMIODARONE [Suspect]
     Active Substance: AMIODARONE
     Indication: ATRIAL FIBRILLATION
     Dosage: 200 MILLIGRAM, Q 12 HRS
     Route: 048
  33. ELIQUIS [Concomitant]
     Active Substance: APIXABAN
     Indication: PRODUCT USED FOR UNKNOWN INDICATION
     Dosage: 5 MILLIGRAM, BID
     Route: 048

REACTIONS (50)
  - Renal failure [Not Recovered/Not Resolved]
  - Pericarditis [Unknown]
  - Leukocytosis [Recovering/Resolving]
  - Metabolic encephalopathy [Recovering/Resolving]
  - Skin cancer [Unknown]
  - Neuralgia [Unknown]
  - Carpal tunnel syndrome [Unknown]
  - Diarrhoea [Unknown]
  - Oesophageal candidiasis [Unknown]
  - Musculoskeletal pain [Unknown]
  - Myalgia [Unknown]
  - Dysphagia [Unknown]
  - Chronic sinusitis [Unknown]
  - Osteoarthritis [Unknown]
  - Vitamin B12 deficiency [Unknown]
  - Allergic sinusitis [Unknown]
  - Prostatitis [Unknown]
  - Cardiac failure [None]
  - Bronchiectasis [Not Recovered/Not Resolved]
  - Hypernatraemia [Recovered/Resolved]
  - Arthralgia [Recovering/Resolving]
  - Spinal osteoarthritis [Unknown]
  - Back pain [Unknown]
  - Therapeutic product effect decreased [Unknown]
  - Death [Fatal]
  - Fracture [Not Recovered/Not Resolved]
  - Fall [Not Recovered/Not Resolved]
  - Pneumonia aspiration [Not Recovered/Not Resolved]
  - Anaemia of chronic disease [Recovering/Resolving]
  - Atrial fibrillation [Unknown]
  - Chronic obstructive pulmonary disease [Unknown]
  - Cholecystitis [Unknown]
  - Pain [Unknown]
  - Increased tendency to bruise [Unknown]
  - Multiple sclerosis [Unknown]
  - Adverse event [Unknown]
  - Benign prostatic hyperplasia [Unknown]
  - Erectile dysfunction [Unknown]
  - Hypotension [Unknown]
  - Asthenia [Unknown]
  - Feeding tube user [Unknown]
  - Respiratory failure [Unknown]
  - Urinary retention [Unknown]
  - Acute kidney injury [Unknown]
  - Secondary hypertension [Unknown]
  - Nasal turbinate hypertrophy [Unknown]
  - Arthralgia [Unknown]
  - Hyperlipidaemia [Unknown]
  - Oedema peripheral [Unknown]
  - Constipation [Unknown]

NARRATIVE: CASE EVENT DATE: 20170330
